FAERS Safety Report 5695697-2 (Version None)
Quarter: 2008Q2

REPORT INFORMATION
  Report Type: 
  Country: None (occurrence: None)
  Receive Date: 20080407
  Receipt Date: 20080326
  Transmission Date: 20081010
  Serious: Yes (Hospitalization, Other)
  Sender: FDA-Public Use
  Company Number: IT-ELI_LILLY_AND_COMPANY-IT200803003917

PATIENT
  Age: 45 Year
  Sex: Male

DRUGS (4)
  1. ZYPREXA [Suspect]
     Indication: BIPOLAR II DISORDER
     Dosage: 5 MG, UNK
     Route: 048
  2. COVERSYL [Concomitant]
     Dosage: UNK, UNK
  3. DIAZEPAM [Concomitant]
     Dosage: UNK, UNK
  4. CHLORIMIPRAMINE [Concomitant]
     Dosage: UNK, UNK

REACTIONS (3)
  - DRUG TOXICITY [None]
  - IATROGENIC INJURY [None]
  - RENAL FAILURE [None]
